FAERS Safety Report 11322431 (Version 1)
Quarter: 2015Q3

REPORT INFORMATION
  Report Type: Spontaneous
  Country: US (occurrence: None)
  Receive Date: 20150728
  Receipt Date: 20150728
  Transmission Date: 20151125
  Serious: Yes (Hospitalization)
  Sender: FDA-Public Use
  Company Number: US-H14001-15-01375

PATIENT
  Age: 25 Year
  Sex: Male

DRUGS (2)
  1. ONDANSETRON [Suspect]
     Active Substance: ONDANSETRON
     Indication: NAUSEA
     Dosage: UP TO 40 TABLETS/DAY (UNKNOWN),ORAL
     Route: 048
  2. ONDANSETRON [Suspect]
     Active Substance: ONDANSETRON
     Indication: HEADACHE
     Dosage: UP TO 40 TABLETS/DAY (UNKNOWN),ORAL
     Route: 048

REACTIONS (3)
  - Posterior reversible encephalopathy syndrome [None]
  - Haemorrhage intracranial [None]
  - Overdose [None]
